FAERS Safety Report 7058939-7 (Version None)
Quarter: 2010Q4

REPORT INFORMATION
  Report Type: 
  Country: None (occurrence: None)
  Receive Date: 20101024
  Receipt Date: 20101018
  Transmission Date: 20110411
  Serious: Yes (Other)
  Sender: FDA-Public Use
  Company Number: US-WYE-H18247710

PATIENT
  Sex: Female
  Weight: 76.27 kg

DRUGS (5)
  1. PRISTIQ [Suspect]
     Indication: DEPRESSION
     Dosage: ^1,000 MG DAILY^
     Route: 048
     Dates: start: 20100801
  2. GEODON [Concomitant]
     Indication: AFFECTIVE DISORDER
     Dosage: UNKNOWN
  3. TRAZODONE [Concomitant]
     Dosage: UNKNOWN
  4. LAMICTAL [Concomitant]
     Dosage: UNKNOWN
  5. AMBIEN [Concomitant]
     Dosage: UNKNOWN

REACTIONS (1)
  - BRAIN OEDEMA [None]
